FAERS Safety Report 4855892-9 (Version None)
Quarter: 2005Q4

REPORT INFORMATION
  Report Type: 
  Country: None (occurrence: None)
  Receive Date: 20051216
  Receipt Date: 20030612
  Transmission Date: 20060501
  Serious: Yes (Other)
  Sender: FDA-Public Use
  Company Number: US-GLAXOSMITHKLINE-A0412842A

PATIENT
  Age: 57 Year
  Sex: Female

DRUGS (1)
  1. PAXIL [Suspect]
     Dosage: 10MG PER DAY
     Route: 048

REACTIONS (24)
  - ABNORMAL DREAMS [None]
  - AGITATION [None]
  - ANXIETY [None]
  - ASTHENIA [None]
  - CONFUSIONAL STATE [None]
  - DEPENDENCE [None]
  - DIZZINESS [None]
  - DRUG DEPENDENCE [None]
  - DRUG WITHDRAWAL SYNDROME [None]
  - FATIGUE [None]
  - FEELING ABNORMAL [None]
  - GASTROINTESTINAL DISORDER [None]
  - HEADACHE [None]
  - HYPERHIDROSIS [None]
  - INSOMNIA [None]
  - IRRITABILITY [None]
  - MUSCLE SPASMS [None]
  - NAUSEA [None]
  - PALPITATIONS [None]
  - PARAESTHESIA [None]
  - SENSORY DISTURBANCE [None]
  - SLEEP DISORDER [None]
  - SYNCOPE [None]
  - TREMOR [None]
